APPROVED DRUG PRODUCT: AZACTAM
Active Ingredient: AZTREONAM
Strength: 500MG/VIAL **Federal Register determination that product was not discontinued or withdrawn for safety or effectiveness reasons**
Dosage Form/Route: INJECTABLE;INJECTION
Application: N050580 | Product #001
Applicant: BRISTOL MYERS SQUIBB
Approved: Dec 31, 1986 | RLD: No | RS: No | Type: DISCN